FAERS Safety Report 21849641 (Version 1)
Quarter: 2023Q1

REPORT INFORMATION
  Report Type: Spontaneous
  Country: GB (occurrence: GB)
  Receive Date: 20230111
  Receipt Date: 20230111
  Transmission Date: 20230418
  Serious: Yes (Other)
  Sender: FDA-Public Use
  Company Number: GB-MYLANLABS-2022M1121746

PATIENT
  Sex: Female

DRUGS (2)
  1. CLOZARIL [Suspect]
     Active Substance: CLOZAPINE
     Indication: Borderline personality disorder
     Dosage: UNK
     Route: 048
     Dates: start: 20221115
  2. CLOZARIL [Suspect]
     Active Substance: CLOZAPINE
     Indication: Intentional self-injury

REACTIONS (3)
  - Haemoglobin decreased [Unknown]
  - Red blood cell count decreased [Unknown]
  - Off label use [Unknown]

NARRATIVE: CASE EVENT DATE: 20230109
